FAERS Safety Report 8337681-6 (Version None)
Quarter: 2012Q2

REPORT INFORMATION
  Report Type: 
  Country: None (occurrence: None)
  Receive Date: 20120504
  Receipt Date: 20120504
  Transmission Date: 20120825
  Serious: Yes (Other)
  Sender: FDA-Public Use
  Company Number: None

PATIENT
  Age: 33 Year
  Sex: Female
  Weight: 72.574 kg

DRUGS (3)
  1. ZOLOFT [Concomitant]
     Route: 048
  2. SEROQUEL XR [Suspect]
     Indication: MAJOR DEPRESSION
     Dosage: |DOSAGETEXT: 50.0 MG||STRENGTH: 50 MG||FREQ: ONCE||ROUTE: ORAL|
     Route: 048
     Dates: start: 20120501, end: 20120503
  3. XANAX [Concomitant]
     Route: 048

REACTIONS (11)
  - TONGUE DISORDER [None]
  - ORAL PAIN [None]
  - AMNESIA [None]
  - TONGUE BITING [None]
  - DYSPHEMIA [None]
  - TONGUE DISCOLOURATION [None]
  - MOTOR DYSFUNCTION [None]
  - TREMOR [None]
  - HYPOAESTHESIA ORAL [None]
  - DECREASED APPETITE [None]
  - CONFUSIONAL STATE [None]
